FAERS Safety Report 16099606 (Version 15)
Quarter: 2020Q2

REPORT INFORMATION
  Report Type: Other
  Country: AT (occurrence: AT)
  Receive Date: 20190321
  Receipt Date: 20200630
  Transmission Date: 20200713
  Serious: Yes (Hospitalization, Other)
  Sender: FDA-Public Use
  Company Number: AT-CELLTRION INC.-2018AT022021

PATIENT

DRUGS (56)
  1. PERTUZUMAB. [Suspect]
     Active Substance: PERTUZUMAB
     Indication: BREAST CANCER
     Dosage: 840 MG, EVERY 3 WEEKS
     Route: 042
     Dates: start: 20180809
  2. FENISTIL [Concomitant]
     Active Substance: DIMETHINDENE
     Dosage: UNK
     Route: 065
     Dates: start: 20180809, end: 20190704
  3. MACROGOL [Concomitant]
     Active Substance: POLYETHYLENE GLYCOLS
     Indication: PRODUCT USED FOR UNKNOWN INDICATION
     Dosage: ONGOING = NOT CHECKED
     Route: 065
     Dates: start: 20180719
  4. FORTECORTIN [DEXAMETHASONE] [Concomitant]
     Active Substance: DEXAMETHASONE
     Indication: VERTIGO
     Dosage: ONGOING = NOT CHECKED
     Route: 065
     Dates: start: 20190819, end: 20190912
  5. AROMASIN [Suspect]
     Active Substance: EXEMESTANE
     Indication: HER2 POSITIVE BREAST CANCER
     Dosage: MOST RECENT DOSE: 07/MAY/2019
     Route: 048
     Dates: start: 20180719, end: 20190507
  6. FEMARA [Suspect]
     Active Substance: LETROZOLE
     Indication: HER2 POSITIVE BREAST CANCER
     Dosage: RECENT DOSE ON 19/AUG/2019
     Route: 048
     Dates: start: 20190508, end: 20190819
  7. PERTUZUMAB. [Suspect]
     Active Substance: PERTUZUMAB
     Indication: HER2 POSITIVE BREAST CANCER
     Dosage: 840 MG, EVERY 3 WEEKS (MOST RECENT DOSE PRIOR TO THE EVENT 19/JUL/2018 MOST RECENT DOSE PRIOR TO THE
     Route: 042
     Dates: start: 20180719, end: 20180719
  8. XGEVA [Concomitant]
     Active Substance: DENOSUMAB
     Dosage: ONGOING = CHECKED
     Route: 065
     Dates: start: 20181215
  9. EUTHYROX [Concomitant]
     Active Substance: LEVOTHYROXINE SODIUM
     Indication: PRODUCT USED FOR UNKNOWN INDICATION
     Dosage: ONGOING = CHECKED
  10. DUROTIV [Concomitant]
     Active Substance: ESOMEPRAZOLE
     Dosage: ONGOING = NOT CHECKED
     Dates: start: 20190919, end: 20200207
  11. ULSAL [Concomitant]
     Active Substance: RANITIDINE HYDROCHLORIDE
     Dosage: UNK
  12. VERTIROSAN (AUSTRIA) [Concomitant]
     Active Substance: DIMENHYDRINATE
     Indication: VERTIGO
     Dosage: UNK
     Dates: start: 20191218
  13. HYDAL [Concomitant]
     Active Substance: HYDROMORPHONE HYDROCHLORIDE
     Indication: DYSPEPSIA
     Dosage: UNK
     Route: 065
  14. HALDOL [Concomitant]
     Active Substance: HALOPERIDOL
     Indication: NAUSEA
     Dosage: UNK
     Route: 065
     Dates: start: 20180731, end: 20180815
  15. TRASTUZUMAB (UNKNOWN) [Suspect]
     Active Substance: TRASTUZUMAB
     Indication: BREAST CANCER
     Dosage: 440 MG, EVERY 3 WEEKS
     Route: 042
     Dates: start: 20180809, end: 20180809
  16. NAVELBINE [Suspect]
     Active Substance: VINORELBINE TARTRATE
     Indication: BREAST CANCER
  17. AROMASIN [Suspect]
     Active Substance: EXEMESTANE
     Indication: BREAST CANCER
  18. ONTRUZANT [Suspect]
     Active Substance: TRASTUZUMAB-DTTB
     Dosage: 336MG, EVERY 3 WEEKS (MOST RECENT DOSE ON 04/JUL/2019)
     Route: 042
     Dates: start: 20190613
  19. KYTRIL [Concomitant]
     Active Substance: GRANISETRON HYDROCHLORIDE
     Dosage: ONGOING = CHECKED
     Route: 065
     Dates: start: 20190829
  20. NOVALGIN (METAMIZOLE SODIUM) [Concomitant]
     Active Substance: METAMIZOLE SODIUM
     Dosage: ONGOING = CHECKED
     Route: 065
     Dates: start: 20180727
  21. DEXAMETHASON [DEXAMETHASONE] [Concomitant]
     Active Substance: DEXAMETHASONE
     Dosage: ONGOING = CHECKED
     Route: 065
     Dates: start: 20190819, end: 20190912
  22. HALDOL [Concomitant]
     Active Substance: HALOPERIDOL
     Indication: DYSPEPSIA
     Dosage: UNK
     Route: 065
     Dates: start: 20180727, end: 20180815
  23. ONDANSETRON [Concomitant]
     Active Substance: ONDANSETRON
     Indication: PRODUCT USED FOR UNKNOWN INDICATION
     Dosage: UNK
     Route: 065
     Dates: start: 20180709
  24. TRASTUZUMAB EMTANSINE [Suspect]
     Active Substance: ADO-TRASTUZUMAB EMTANSINE
     Indication: HER2 POSITIVE BREAST CANCER
     Dosage: 201.6 MG, EVERY 3 WEEKS (MOST RECENT DOSE PRIOR TO THE EVENT: 29/AUG/2019, 03/OCT/2019)
     Route: 042
     Dates: start: 20190829, end: 20190829
  25. DEXABENE [Concomitant]
     Dosage: UNK
  26. BEPANTHEN EYE [Concomitant]
     Active Substance: DEXPANTHENOL\HYALURONATE SODIUM
     Indication: CONJUNCTIVITIS
     Dosage: UNK
     Dates: start: 20190221
  27. HYDAL [Concomitant]
     Active Substance: HYDROMORPHONE HYDROCHLORIDE
     Indication: NAUSEA
     Dosage: ONGOING = CHECKED
     Route: 065
     Dates: start: 20180727
  28. IMODIUM [Concomitant]
     Active Substance: LOPERAMIDE HYDROCHLORIDE
     Dosage: UNK
  29. PERTUZUMAB. [Suspect]
     Active Substance: PERTUZUMAB
     Dosage: 420 MG (MOST RECENT DOSE PRIOR TO THE EVENT: 09/AUG/2018 )
     Route: 042
     Dates: start: 20180809
  30. VINORELBINE TARTRATE. [Suspect]
     Active Substance: VINORELBINE TARTRATE
     Indication: HER2 POSITIVE BREAST CANCER
     Dosage: MOST RECENT DOSE PRIOR TO THE EVENT PERIPHERAL NEUROPATHY IN THE FINGERS: 30/NOV/2018
     Route: 048
     Dates: start: 20180719
  31. DEXABENE [Concomitant]
     Dosage: UNK
     Route: 065
     Dates: start: 20180809, end: 20190704
  32. APREDNISLON [Concomitant]
     Active Substance: PREDNISOLONE
     Dosage: ONGOING = NOT CHECKED
     Route: 065
     Dates: start: 20190912, end: 20191114
  33. VITAMINS WITH MINERALS [Concomitant]
     Active Substance: MINERALS\VITAMINS
     Dosage: ONGOING = CHECKED
     Route: 065
     Dates: start: 20181205
  34. NAVELBINE [Suspect]
     Active Substance: VINORELBINE TARTRATE
     Indication: HER2 POSITIVE BREAST CANCER
     Dosage: 50 MG (MOST RECENT DOSE PRIOR TO THE EVENT: 30/NOV/2018, 13/JUN/2019)
     Route: 048
     Dates: start: 20180719, end: 20181130
  35. ONTRUZANT [Suspect]
     Active Substance: TRASTUZUMAB-DTTB
     Indication: HER2 POSITIVE BREAST CANCER
     Dosage: 336 MG, EVERY 3 WEEKS
     Route: 042
     Dates: start: 20181129, end: 20190516
  36. DEXAMETHASONE. [Concomitant]
     Active Substance: DEXAMETHASONE
     Dosage: UNK
     Dates: start: 20190829
  37. MACROGOL [Concomitant]
     Active Substance: POLYETHYLENE GLYCOLS
     Dosage: UNK
     Route: 065
     Dates: start: 20190615
  38. FORTECORTIN [DEXAMETHASONE] [Concomitant]
     Active Substance: DEXAMETHASONE
     Dosage: ONGOING = CHECKED
     Dates: start: 20191114
  39. MAGNESIUM SUCCINATE [Concomitant]
     Dosage: ONGOING = CHECKED
     Dates: start: 20190819
  40. DUROTIV [Concomitant]
     Active Substance: ESOMEPRAZOLE
     Indication: NAUSEA
     Dosage: UNK
     Route: 065
     Dates: start: 20180819
  41. DUROTIV [Concomitant]
     Active Substance: ESOMEPRAZOLE
     Dosage: UNK
     Dates: start: 20190819
  42. DEXAMETHASON [DEXAMETHASONE] [Concomitant]
     Active Substance: DEXAMETHASONE
     Dosage: UNK
     Route: 065
     Dates: start: 20190829
  43. AUGMENTIN [Concomitant]
     Active Substance: AMOXICILLIN\CLAVULANATE POTASSIUM
     Dosage: UNK
     Dates: start: 20191215, end: 20191215
  44. TRASTUZUMAB EMTANSINE [Suspect]
     Active Substance: ADO-TRASTUZUMAB EMTANSINE
     Indication: BREAST CANCER
  45. ONDANSAN [Concomitant]
     Active Substance: ONDANSETRON HYDROCHLORIDE
     Dosage: UNK
     Route: 065
     Dates: start: 20180709, end: 20190206
  46. ONDANSAN [Concomitant]
     Active Substance: ONDANSETRON HYDROCHLORIDE
     Dosage: UNK
  47. AZITHROMYCIN ANHYDROUS. [Concomitant]
     Active Substance: AZITHROMYCIN ANHYDROUS
     Indication: PYREXIA
     Dosage: ONGOING = NOT CHECKED
     Route: 065
     Dates: start: 20190910, end: 20190912
  48. DUROTIV [Concomitant]
     Active Substance: ESOMEPRAZOLE
     Indication: DYSPEPSIA
     Dosage: UNK
     Route: 065
     Dates: start: 20180727, end: 20190615
  49. ULSAL [Concomitant]
     Active Substance: RANITIDINE HYDROCHLORIDE
     Dosage: UNK
     Route: 065
     Dates: start: 20180809, end: 20190704
  50. TRASTUZUMAB (UNKNOWN) [Suspect]
     Active Substance: TRASTUZUMAB
     Indication: HER2 POSITIVE BREAST CANCER
     Dosage: 440 MG, EVERY 3 WEEKS (MOST RECENT DOSE PRIOR TO THE EVENT: 09/AUG/2018, 30/AUG/2018)
     Route: 042
     Dates: start: 20180719
  51. FEMARA [Suspect]
     Active Substance: LETROZOLE
     Indication: BREAST CANCER
  52. FENISTIL [Concomitant]
     Active Substance: DIMETHINDENE
     Dosage: UNK
  53. ZOFRAN [Concomitant]
     Active Substance: ONDANSETRON HYDROCHLORIDE
     Indication: NAUSEA
     Dosage: UNK
     Route: 065
     Dates: start: 20180920, end: 20190615
  54. ZOFRAN [Concomitant]
     Active Substance: ONDANSETRON HYDROCHLORIDE
     Dosage: ONGOING = CHECKED
     Dates: start: 20190919
  55. BEPANTHEN [DEXPANTHENOL] [Concomitant]
     Active Substance: DEXPANTHENOL
     Indication: CONJUNCTIVITIS
     Dosage: ONGOING = CHECKED
     Dates: start: 20190221
  56. IMODIUM [Concomitant]
     Active Substance: LOPERAMIDE HYDROCHLORIDE
     Indication: DIARRHOEA
     Dosage: ONGOING = CHECKED
     Route: 065
     Dates: start: 20180731

REACTIONS (16)
  - Neuropathy peripheral [Not Recovered/Not Resolved]
  - Conjunctivitis [Recovered/Resolved]
  - Infusion related reaction [Recovered/Resolved]
  - Vertigo [Recovered/Resolved]
  - Pyrexia [Recovered/Resolved]
  - Pain [Recovering/Resolving]
  - Muscle spasms [Not Recovered/Not Resolved]
  - Dyspepsia [Recovered/Resolved]
  - Mucosal dryness [Recovered/Resolved]
  - Breast pain [Recovered/Resolved]
  - Diarrhoea [Not Recovered/Not Resolved]
  - Dysphagia [Recovered/Resolved]
  - Nausea [Recovered/Resolved]
  - Vertigo [Not Recovered/Not Resolved]
  - Dry skin [Recovered/Resolved]
  - Nausea [Recovered/Resolved]

NARRATIVE: CASE EVENT DATE: 20180727
